FAERS Safety Report 9817568 (Version 2)
Quarter: 2014Q1

REPORT INFORMATION
  Report Type: Spontaneous
  Country: US (occurrence: US)
  Receive Date: 20140115
  Receipt Date: 20140224
  Transmission Date: 20141002
  Serious: No
  Sender: FDA-Public Use
  Company Number: US-009507513-1401USA005282

PATIENT
  Age: 31 Year
  Sex: Female
  Weight: 52.15 kg

DRUGS (3)
  1. PEGINTRON [Suspect]
     Indication: HEPATITIS C
     Dosage: 80 MICROGRAM, PER WEEK
     Route: 058
     Dates: start: 20130911, end: 201312
  2. REBETOL [Suspect]
     Indication: HEPATITIS C
     Dosage: 2 CAPSULES, TWICE DAILY
     Route: 048
     Dates: start: 20130911, end: 201312
  3. VICTRELIS [Suspect]
     Indication: HEPATITIS C
     Dosage: 4 CAPSULES, THREE TIMES DAILY
     Route: 048
     Dates: start: 20130911, end: 201312

REACTIONS (4)
  - Wrist surgery [Not Recovered/Not Resolved]
  - Arthropathy [Not Recovered/Not Resolved]
  - Oropharyngeal pain [Not Recovered/Not Resolved]
  - Dyspnoea [Not Recovered/Not Resolved]
